FAERS Safety Report 26144609 (Version 4)
Quarter: 2025Q4

REPORT INFORMATION
  Report Type: Spontaneous
  Country: EU (occurrence: EU)
  Receive Date: 20251211
  Receipt Date: 20251226
  Transmission Date: 20260117
  Serious: Yes (Hospitalization, Other)
  Sender: NOVARTIS
  Company Number: EU-SANDOZ-SDZ2025DE093080

PATIENT
  Sex: Male

DRUGS (7)
  1. DICLOFENAC [Suspect]
     Active Substance: DICLOFENAC
     Indication: Product used for unknown indication
     Dosage: 75 MG (75 MG, PATIENT ROA: UNKNOWN.)  (DICLOFENAC POTASSIUM, DICLOFENAC EPOLAMINE, DICLOFENAC DIETHY
     Route: 065
     Dates: start: 20210815, end: 20220815
  2. COSENTYX [Suspect]
     Active Substance: SECUKINUMAB
     Indication: Product used for unknown indication
     Dosage: 150 MG (~150 MG, PATIENT ROA: UNKNOWN)
     Route: 065
     Dates: start: 20200215, end: 20240513
  3. COSENTYX [Suspect]
     Active Substance: SECUKINUMAB
     Dosage: 300 MG (300 MG, PATIENT ROA: UNKNOWN.)
     Route: 065
     Dates: start: 20200215
  4. XELJANZ [Suspect]
     Active Substance: TOFACITINIB CITRATE
     Indication: Product used for unknown indication
     Dosage: 10 MG (10 MG, PATIENT ROA: UNKNOWN.)
     Route: 065
     Dates: start: 20191101, end: 20200214
  5. SKYRIZI [Suspect]
     Active Substance: RISANKIZUMAB-RZAA
     Indication: Product used for unknown indication
     Dosage: 150 MG (~150 MG, PATIENT ROA: UNKNOWN)
     Route: 065
     Dates: start: 20240513, end: 20250630
  6. IBUPROFEN [Suspect]
     Active Substance: IBUPROFEN
     Indication: Product used for unknown indication
     Dosage: UNK (UNK, PATIENT ROA: UNKNOWN.)
     Route: 065
  7. BIMZELX [Suspect]
     Active Substance: BIMEKIZUMAB-BKZX
     Indication: Product used for unknown indication
     Dosage: 160 MG (160 MG, PATIENT ROA: UNKNOWN. FIRST ADMIN DATE: 30 JUN 2025 )
     Route: 065
     Dates: start: 20250630

REACTIONS (1)
  - Ischaemic stroke [Unknown]

NARRATIVE: CASE EVENT DATE: 20240614
